FAERS Safety Report 4515124-8 (Version None)
Quarter: 2004Q4

REPORT INFORMATION
  Report Type: 
  Country: None (occurrence: None)
  Receive Date: 20041201
  Receipt Date: 20041124
  Transmission Date: 20050328
  Serious: Yes (Hospitalization)
  Sender: FDA-Public Use
  Company Number: PHBS2004JP15895

PATIENT
  Age: 57 Year
  Sex: Male

DRUGS (2)
  1. GRAN [Suspect]
     Indication: CHRONIC MYELOID LEUKAEMIA
     Route: 065
     Dates: start: 20040901
  2. GLEEVEC [Suspect]
     Indication: CHRONIC MYELOID LEUKAEMIA
     Dosage: 300 MG/D
     Route: 048
     Dates: start: 20040701, end: 20040801

REACTIONS (5)
  - APLASTIC ANAEMIA [None]
  - GASTRIC CANCER [None]
  - INTERSTITIAL LUNG DISEASE [None]
  - SURGERY [None]
  - WHITE BLOOD CELL COUNT DECREASED [None]
